FAERS Safety Report 9228262 (Version 1)
Quarter: 2013Q2

REPORT INFORMATION
  Report Type: Spontaneous
  Country: CN (occurrence: None)
  Receive Date: 20130410
  Receipt Date: 20130410
  Transmission Date: 20140414
  Serious: Yes (Other)
  Sender: FDA-Public Use
  Company Number: 7200308

PATIENT
  Age: 26 Year
  Sex: Female

DRUGS (1)
  1. EUTHYROX [Suspect]
     Indication: HYPOTHYROIDISM
     Dosage: 1 IN 1 D, ORAL
     Route: 048
     Dates: start: 20120405

REACTIONS (2)
  - Ectopic pregnancy [None]
  - Maternal exposure during pregnancy [None]
